FAERS Safety Report 25418179 (Version 4)
Quarter: 2025Q3

REPORT INFORMATION
  Report Type: Spontaneous
  Country: US (occurrence: US)
  Receive Date: 20250610
  Receipt Date: 20250912
  Transmission Date: 20251021
  Serious: Yes (Hospitalization, Other)
  Sender: AVADEL CNS PHARMACEUTICALS, LLC
  Company Number: US-AVADEL CNS PHARMACEUTICALS, LLC-2025AVA01433

PATIENT
  Sex: Female
  Weight: 49.887 kg

DRUGS (16)
  1. LUMRYZ [Suspect]
     Active Substance: SODIUM OXYBATE
     Indication: Narcolepsy
     Dosage: 4.5 G, ONCE NIGHTLY AT BEDTIME
     Route: 048
     Dates: start: 20250415, end: 202504
  2. LUMRYZ [Suspect]
     Active Substance: SODIUM OXYBATE
     Indication: Cataplexy
     Dosage: 4.5 G, ONCE NIGHTLY AT BEDTIME (WHILE HOSPITALIZED)
     Route: 048
     Dates: start: 20250502, end: 20250503
  3. LUMRYZ [Suspect]
     Active Substance: SODIUM OXYBATE
     Dosage: 4.5 G, ONCE NIGHTLY AT BEDTIME
     Route: 048
     Dates: start: 202505, end: 2025
  4. LUMRYZ [Suspect]
     Active Substance: SODIUM OXYBATE
     Dosage: 4.5 G, ONCE NIGHTLY AT BEDTIME
     Route: 048
     Dates: start: 2025, end: 2025
  5. LUMRYZ [Suspect]
     Active Substance: SODIUM OXYBATE
     Dosage: 4.5 G, ONCE NIGHTLY AT BEDTIME
     Route: 048
     Dates: start: 2025
  6. LUMRYZ [Suspect]
     Active Substance: SODIUM OXYBATE
     Indication: Narcolepsy
     Dosage: 6 G, ONCE NIGHTLY AT BEDTIME
     Route: 048
     Dates: start: 202504, end: 20250430
  7. LUMRYZ [Suspect]
     Active Substance: SODIUM OXYBATE
     Indication: Cataplexy
  8. LUMRYZ [Suspect]
     Active Substance: SODIUM OXYBATE
     Indication: Narcolepsy
     Dosage: 60 ML, ONCE NIGHTLY (FROM 7.5 G PACKET MIXED WITH 100 MLS OF WATER)
     Route: 048
     Dates: start: 20250504, end: 202505
  9. LUMRYZ [Suspect]
     Active Substance: SODIUM OXYBATE
     Indication: Cataplexy
  10. EFFEXOR [Concomitant]
     Active Substance: VENLAFAXINE HYDROCHLORIDE
  11. MODAFINIL [Concomitant]
     Active Substance: MODAFINIL
     Dosage: 200 MG, TWICE DAILY
     Dates: end: 202505
  12. MODAFINIL [Concomitant]
     Active Substance: MODAFINIL
     Dosage: 100 MG, TWICE DAILY
     Dates: start: 20250513
  13. GABAPENTIN [Concomitant]
     Active Substance: GABAPENTIN
     Dosage: 900 MG, NIGHTLY (PLANNED TO REDUCE AS SHE WAS STARTING LUMRYZ)
  14. SPIRONOLACTONE [Concomitant]
     Active Substance: SPIRONOLACTONE
  15. ADDERALL XR [Concomitant]
     Active Substance: AMPHETAMINE ASPARTATE\AMPHETAMINE SULFATE\DEXTROAMPHETAMINE SACCHARATE\DEXTROAMPHETAMINE SULFATE
  16. MIRENA [Concomitant]
     Active Substance: LEVONORGESTREL
     Route: 015

REACTIONS (18)
  - Mental status changes [Recovered/Resolved]
  - Withdrawal syndrome [Recovered/Resolved]
  - Paranoia [Recovered/Resolved]
  - Delirium [Recovered/Resolved]
  - Confusional state [Recovered/Resolved]
  - Psychotic disorder [Unknown]
  - Head injury [Unknown]
  - Fall [Unknown]
  - Concussion [Unknown]
  - Somnolence [Unknown]
  - Myalgia [Unknown]
  - Chest discomfort [Recovered/Resolved]
  - Insomnia [Not Recovered/Not Resolved]
  - Panic attack [Recovered/Resolved]
  - Anxiety [Recovered/Resolved]
  - Nocturia [Not Recovered/Not Resolved]
  - Enuresis [Unknown]
  - Wrong technique in product usage process [Recovered/Resolved]

NARRATIVE: CASE EVENT DATE: 20250101
